FAERS Safety Report 8558930-5 (Version None)
Quarter: 2012Q3

REPORT INFORMATION
  Report Type: 
  Country: None (occurrence: None)
  Receive Date: 20120802
  Receipt Date: 20120719
  Transmission Date: 20120928
  Serious: Yes (Hospitalization)
  Sender: FDA-Public Use
  Company Number: FR-MYLANLABS-2012S1014989

PATIENT
  Age: 69 Year
  Sex: Female

DRUGS (3)
  1. LOSARTAN POTASSIUM [Suspect]
     Route: 065
  2. HYDROCHLOROTHIAZIDE [Suspect]
     Route: 065
  3. ALLOPURINOL [Suspect]
     Route: 065

REACTIONS (1)
  - DRUG RASH WITH EOSINOPHILIA AND SYSTEMIC SYMPTOMS [None]
